FAERS Safety Report 24996024 (Version 1)
Quarter: 2025Q1

REPORT INFORMATION
  Report Type: Spontaneous
  Country: US (occurrence: US)
  Receive Date: 20250221
  Receipt Date: 20250221
  Transmission Date: 20250409
  Serious: No
  Sender: CATALYST PHARMA
  Company Number: US-CATALYST PHARMACEUTICALS-US-CATA-24-01529

PATIENT
  Sex: Male
  Weight: 24.49 kg

DRUGS (4)
  1. AGAMREE [Suspect]
     Active Substance: VAMOROLONE
     Indication: Duchenne muscular dystrophy
     Dosage: 3 ML ONCE A DAY
     Route: 048
     Dates: start: 20240611
  2. DUVYZAT [Suspect]
     Active Substance: GIVINOSTAT
     Indication: Duchenne muscular dystrophy
     Dosage: 3.5 ML TWICE DAILY
     Route: 048
     Dates: end: 202411
  3. DUVYZAT [Suspect]
     Active Substance: GIVINOSTAT
     Dosage: 3.5 ML TWICE DAILY
     Route: 048
     Dates: start: 202412
  4. ENALAPRIL [Concomitant]
     Active Substance: ENALAPRIL
     Indication: Cardiovascular disorder
     Dosage: 5 MG ONE A DAY
     Route: 065

REACTIONS (1)
  - Platelet count decreased [Not Recovered/Not Resolved]

NARRATIVE: CASE EVENT DATE: 20240101
